FAERS Safety Report 9642545 (Version 1)
Quarter: 2013Q4

REPORT INFORMATION
  Report Type: Spontaneous
  Country: US (occurrence: US)
  Receive Date: 20131024
  Receipt Date: 20131024
  Transmission Date: 20140711
  Serious: Yes (Hospitalization)
  Sender: FDA-Public Use
  Company Number: US-BAYER-2013-128335

PATIENT
  Age: 28 Year
  Sex: Female
  Weight: 80.27 kg

DRUGS (7)
  1. OCELLA [Suspect]
  2. PERCOCET [Concomitant]
  3. LORTAB [Concomitant]
  4. HYDROCODONE [Concomitant]
  5. NORCO [Concomitant]
     Dosage: 5-325 2 EVERY 4-6 HOURS AS NEEDED
  6. MOTRIN [Concomitant]
     Dosage: 800 MG EVERY 8 HOURS AS NEEDED
     Route: 048
  7. ZYVOX [Concomitant]
     Dosage: UNK

REACTIONS (1)
  - Pulmonary embolism [None]
